FAERS Safety Report 5876841-0 (Version None)
Quarter: 2008Q3

REPORT INFORMATION
  Report Type: 
  Country: None (occurrence: None)
  Receive Date: 20080910
  Receipt Date: 20080901
  Transmission Date: 20090109
  Serious: Yes (Hospitalization)
  Sender: FDA-Public Use
  Company Number: JP-ASTRAZENECA-2008AP06103

PATIENT
  Age: 77 Year
  Sex: Female
  Weight: 29 kg

DRUGS (7)
  1. IRESSA [Suspect]
     Indication: LUNG ADENOCARCINOMA
     Route: 048
     Dates: start: 20060926, end: 20080619
  2. IRESSA [Suspect]
     Route: 048
     Dates: start: 20080620, end: 20080714
  3. IRESSA [Suspect]
     Route: 048
     Dates: start: 20080715, end: 20080722
  4. MOBIC [Concomitant]
     Indication: CANCER PAIN
     Route: 048
     Dates: start: 20061226, end: 20080803
  5. URSO 250 [Concomitant]
     Indication: HEPATIC FUNCTION ABNORMAL
     Route: 048
     Dates: start: 20070807, end: 20080803
  6. PROMAC [Concomitant]
     Indication: GASTRIC ULCER
     Route: 048
     Dates: start: 20080715, end: 20080803
  7. LANSOPRAZOLE [Concomitant]
     Dosage: DOSE UNKNOWN
     Route: 048

REACTIONS (5)
  - ALTERED STATE OF CONSCIOUSNESS [None]
  - DECREASED APPETITE [None]
  - DYSGEUSIA [None]
  - HYPOPHAGIA [None]
  - VOMITING [None]
